FAERS Safety Report 9119309 (Version 1)
Quarter: 2013Q1

REPORT INFORMATION
  Report Type: Report from Study
  Country: US (occurrence: US)
  Receive Date: 20130207
  Receipt Date: 20130207
  Transmission Date: 20140127
  Serious: Yes (Other)
  Sender: FDA-Public Use
  Company Number: US-US-EMD SERONO, INC.-7191275

PATIENT
  Sex: Female

DRUGS (1)
  1. REBIF [Suspect]
     Indication: MULTIPLE SCLEROSIS
     Route: 058
     Dates: start: 20111205

REACTIONS (13)
  - Ligament rupture [Not Recovered/Not Resolved]
  - Synovial cyst [Not Recovered/Not Resolved]
  - Ligament disorder [Not Recovered/Not Resolved]
  - Arthritis [Unknown]
  - Hypertension [Not Recovered/Not Resolved]
  - Faeces discoloured [Recovered/Resolved]
  - Dyspnoea [Unknown]
  - Cough [Unknown]
  - Tremor [Unknown]
  - Fluid retention [Not Recovered/Not Resolved]
  - Muscle tightness [Unknown]
  - Pain in extremity [Not Recovered/Not Resolved]
  - Influenza like illness [Recovered/Resolved]
